FAERS Safety Report 5312170-1 (Version None)
Quarter: 2007Q2

REPORT INFORMATION
  Report Type: 
  Country: None (occurrence: None)
  Receive Date: 20070430
  Receipt Date: 20060804
  Transmission Date: 20071010
  Serious: No
  Sender: FDA-Public Use
  Company Number: 2006UW15588

PATIENT
  Age: 50 Year
  Sex: Female
  Weight: 95.3 kg

DRUGS (2)
  1. NEXIUM [Suspect]
     Indication: OESOPHAGEAL DISORDER
     Route: 048
  2. LEVOTHYROXINE SODIUM [Concomitant]

REACTIONS (3)
  - ILL-DEFINED DISORDER [None]
  - MALAISE [None]
  - SKIN BURNING SENSATION [None]
